FAERS Safety Report 24079509 (Version 3)
Quarter: 2024Q3

REPORT INFORMATION
  Report Type: Spontaneous
  Country: AR (occurrence: AR)
  Receive Date: 20240711
  Receipt Date: 20240805
  Transmission Date: 20241017
  Serious: Yes (Other)
  Sender: MYLAN
  Company Number: AR-MYLANLABS-2024M1058221

PATIENT
  Age: 23 Year
  Sex: Female

DRUGS (3)
  1. CLOZAPINE [Suspect]
     Active Substance: CLOZAPINE
     Indication: Psychotic disorder
     Dosage: 200 MILLIGRAM, QD
     Route: 065
     Dates: start: 20240528
  2. VALPROIC ACID [Concomitant]
     Active Substance: VALPROIC ACID
     Indication: Impulsive behaviour
     Dosage: 2000 MILLIGRAM
     Route: 048
  3. VALPROIC ACID [Concomitant]
     Active Substance: VALPROIC ACID
     Indication: Defiant behaviour

REACTIONS (3)
  - Neutropenia [Recovered/Resolved]
  - Salivary hypersecretion [Recovering/Resolving]
  - Leukocytosis [Recovered/Resolved]

NARRATIVE: CASE EVENT DATE: 20240620
